FAERS Safety Report 5798703-X (Version None)
Quarter: 2008Q2

REPORT INFORMATION
  Report Type: 
  Country: None (occurrence: None)
  Receive Date: 20080630
  Receipt Date: 20080613
  Transmission Date: 20081010
  Serious: Yes (Other)
  Sender: FDA-Public Use
  Company Number: GB-DEXPHARM-20080650

PATIENT
  Age: 13 Year
  Sex: Female

DRUGS (1)
  1. PERIOCHIP [Suspect]
     Dosage: 2.5 MG MILLIGRAM(S) TOPICAL
     Route: 061

REACTIONS (1)
  - SWELLING FACE [None]
